FAERS Safety Report 9088780 (Version 1)
Quarter: 2013Q1

REPORT INFORMATION
  Report Type: Spontaneous
  Country: US (occurrence: US)
  Receive Date: 20130201
  Receipt Date: 20130201
  Transmission Date: 20140127
  Serious: No
  Sender: FDA-Public Use
  Company Number: US-ABBOTT-12P-163-1025008-00

PATIENT
  Sex: Female

DRUGS (1)
  1. HUMIRA PEN [Suspect]
     Indication: ACCIDENTAL EXPOSURE TO PRODUCT

REACTIONS (2)
  - Accidental exposure to product [Recovered/Resolved]
  - Wrong technique in drug usage process [Recovered/Resolved]
